FAERS Safety Report 7669389-4 (Version None)
Quarter: 2011Q3

REPORT INFORMATION
  Report Type: 
  Country: None (occurrence: None)
  Receive Date: 20110808
  Receipt Date: 20110725
  Transmission Date: 20111222
  Serious: Yes (Death)
  Sender: FDA-Public Use
  Company Number: JP-ROCHE-793275

PATIENT
  Sex: Female

DRUGS (9)
  1. OXALIPLATIN [Suspect]
     Indication: COLON CANCER METASTATIC
     Route: 042
     Dates: start: 20100705, end: 20101105
  2. ISOVORIN [Concomitant]
     Route: 041
     Dates: start: 20100705, end: 20101105
  3. ISOVORIN [Concomitant]
     Route: 041
     Dates: start: 20110215, end: 20110405
  4. TOPOTECAN [Suspect]
     Indication: COLON CANCER METASTATIC
     Route: 042
  5. FLUOROURACIL [Concomitant]
     Route: 042
     Dates: start: 20100705, end: 20101101
  6. FLUOROURACIL [Concomitant]
     Route: 042
     Dates: start: 20101101, end: 20110101
  7. AVASTIN [Suspect]
     Indication: COLON CANCER METASTATIC
     Route: 042
     Dates: start: 20100805, end: 20110405
  8. FLUOROURACIL [Concomitant]
     Route: 042
     Dates: start: 20110215, end: 20110401
  9. ISOVORIN [Concomitant]
     Route: 041
     Dates: start: 20101101, end: 20110101

REACTIONS (3)
  - ABDOMINAL PAIN LOWER [None]
  - CARDIO-RESPIRATORY ARREST [None]
  - INFUSION RELATED REACTION [None]
